FAERS Safety Report 5417980-8 (Version None)
Quarter: 2007Q3

REPORT INFORMATION
  Report Type: 
  Country: None (occurrence: None)
  Receive Date: 20070817
  Receipt Date: 20070813
  Transmission Date: 20080115
  Serious: Yes (Hospitalization, Other)
  Sender: FDA-Public Use
  Company Number: JP-AVENTIS-200712165JP

PATIENT
  Sex: Female

DRUGS (9)
  1. TAXOTERE [Suspect]
     Route: 041
     Dates: start: 20070729, end: 20070729
  2. VOLTAREN [Concomitant]
  3. FAMOTIDINE [Concomitant]
  4. NOVAMIN                            /00013301/ [Concomitant]
  5. OXYCONTIN [Concomitant]
  6. MAGMITT [Concomitant]
  7. PARAPLATIN [Concomitant]
  8. MUCOSTA [Concomitant]
  9. OMEPRAZOLE [Concomitant]

REACTIONS (2)
  - DIZZINESS [None]
  - SPEECH DISORDER [None]
